FAERS Safety Report 9240280 (Version 1)
Quarter: 2013Q1

REPORT INFORMATION
  Report Type: Spontaneous
  Country: US (occurrence: None)
  Receive Date: 20121119
  Receipt Date: 20121119
  Transmission Date: 20140127
  Serious: Yes (Hospitalization, Other)
  Sender: FDA-Public Use
  Company Number: 068226

PATIENT
  Age: 56 Year
  Sex: Female

DRUGS (7)
  1. LACOSAMIDE [Suspect]
     Indication: CONVULSION
  2. KEPPRA [Suspect]
     Indication: CONVULSION
  3. UNKNOWN [Suspect]
     Dates: start: 201206, end: 20120904
  4. PRIMIDONE [Suspect]
     Dosage: 250 MG, QD AT BED TIME
  5. CLONAZEPAM [Suspect]
     Indication: CONVULSION
  6. LAMICTAL [Suspect]
  7. ACETAMINOPHEN W/ HYDROCODONE [Concomitant]

REACTIONS (1)
  - Convulsion [None]
